FAERS Safety Report 21956667 (Version 1)
Quarter: 2023Q1

REPORT INFORMATION
  Report Type: Spontaneous
  Country: DK (occurrence: None)
  Receive Date: 20230206
  Receipt Date: 20230206
  Transmission Date: 20230418
  Serious: Yes (Other)
  Sender: FDA-Public Use
  Company Number: DK-ROCHE-3277363

PATIENT
  Sex: Male

DRUGS (1)
  1. PEGASYS [Suspect]
     Active Substance: PEGINTERFERON ALFA-2A
     Indication: Thrombosis prophylaxis
     Route: 058
     Dates: start: 20190617, end: 202004

REACTIONS (10)
  - Gingival hypertrophy [Unknown]
  - Gingival bleeding [Recovered/Resolved]
  - Diarrhoea [Recovered/Resolved]
  - Renal impairment [Unknown]
  - Large intestinal ulcer haemorrhage [Recovered/Resolved]
  - Proctitis [Recovered/Resolved]
  - Oral pain [Unknown]
  - Mouth swelling [Unknown]
  - Haemoptysis [Unknown]
  - Off label use [Unknown]

NARRATIVE: CASE EVENT DATE: 20200201
